FAERS Safety Report 6059423-X (Version None)
Quarter: 2009Q1

REPORT INFORMATION
  Report Type: 
  Country: None (occurrence: None)
  Receive Date: 20090130
  Receipt Date: 20090127
  Transmission Date: 20090719
  Serious: Yes (Death, Hospitalization)
  Sender: FDA-Public Use
  Company Number: PHEH2009US00581

PATIENT
  Sex: Female
  Weight: 73.6 kg

DRUGS (1)
  1. SANDOSTATIN [Suspect]

REACTIONS (4)
  - ABDOMINAL DISTENSION [None]
  - ABDOMINAL PAIN [None]
  - MESENTERIC OCCLUSION [None]
  - METASTATIC CARCINOID TUMOUR [None]
